FAERS Safety Report 5323025-0 (Version None)
Quarter: 2007Q2

REPORT INFORMATION
  Report Type: 
  Country: None (occurrence: None)
  Receive Date: 20070220
  Receipt Date: 20070109
  Transmission Date: 20071010
  Serious: No
  Sender: FDA-Public Use
  Company Number: WAES 0701USA01082

PATIENT
  Age: 86 Year
  Sex: Male

DRUGS (8)
  1. JANUVIA [Suspect]
     Indication: DIABETES MELLITUS NON-INSULIN-DEPENDENT
     Dosage: PO
     Route: 048
     Dates: start: 20061201, end: 20061201
  2. ACIPHEX [Concomitant]
  3. AMARYL [Concomitant]
  4. CARDURA [Concomitant]
  5. HYZAAR [Concomitant]
  6. PRED FORTE [Concomitant]
  7. ZIAC [Concomitant]
  8. TIMOLOL MALEATE [Concomitant]

REACTIONS (1)
  - UPPER RESPIRATORY TRACT INFECTION [None]
